FAERS Safety Report 23507696 (Version 1)
Quarter: 2024Q1

REPORT INFORMATION
  Report Type: Spontaneous
  Country: US (occurrence: US)
  Receive Date: 20240209
  Receipt Date: 20240209
  Transmission Date: 20240410
  Serious: No
  Sender: FDA-Public Use
  Company Number: US-GSKCCFUS-Case-01924047_AE-107131

PATIENT
  Sex: Female

DRUGS (1)
  1. BENLYSTA [Suspect]
     Active Substance: BELIMUMAB
     Indication: Infection
     Dosage: UNK UNK, Q6W
     Route: 042

REACTIONS (2)
  - Product use in unapproved indication [Unknown]
  - Wrong schedule [Unknown]
